FAERS Safety Report 11486558 (Version 7)
Quarter: 2020Q1

REPORT INFORMATION
  Report Type: Spontaneous
  Country: US (occurrence: US)
  Receive Date: 20150910
  Receipt Date: 20200326
  Transmission Date: 20200409
  Serious: No
  Sender: FDA-Public Use
  Company Number: US-PFIZER INC-2015138277

PATIENT
  Age: 71 Year
  Sex: Female
  Weight: 65 kg

DRUGS (7)
  1. NEXIUM [Concomitant]
     Active Substance: ESOMEPRAZOLE MAGNESIUM
     Indication: ABDOMINAL DISCOMFORT
     Dosage: 40 MG, 2X/DAY
     Dates: start: 2006
  2. RELPAX [Suspect]
     Active Substance: ELETRIPTAN HYDROBROMIDE
     Indication: HEADACHE
     Dosage: 20 MG, AS NEEDED (ONE TABLET PO PRN HA)
     Route: 048
  3. RELPAX [Suspect]
     Active Substance: ELETRIPTAN HYDROBROMIDE
     Indication: MIGRAINE
     Dosage: 2 DF, AS NEEDED
     Dates: start: 2004
  4. RELPAX [Suspect]
     Active Substance: ELETRIPTAN HYDROBROMIDE
     Dosage: 20 MG, AS NEEDED (TWICE A DAY)
     Dates: start: 2005
  5. PREDNISONE. [Concomitant]
     Active Substance: PREDNISONE
     Indication: BEHCET^S SYNDROME
     Dosage: 5 MG, DAILY
  6. WARFARIN [Concomitant]
     Active Substance: WARFARIN
     Indication: THROMBOSIS
     Dosage: 2.5 MG, 1X/DAY
     Dates: start: 1998
  7. TOPAMAX [Concomitant]
     Active Substance: TOPIRAMATE
     Indication: MIGRAINE
     Dosage: 200 MG, 2X/DAY, (200MG IN THE MORNING 200MG AT NIGHT)
     Dates: start: 2005

REACTIONS (2)
  - Inappropriate schedule of product administration [Unknown]
  - Drug ineffective [Recovered/Resolved]

NARRATIVE: CASE EVENT DATE: 2015
